FAERS Safety Report 6917232-0 (Version None)
Quarter: 2010Q3

REPORT INFORMATION
  Report Type: 
  Country: None (occurrence: None)
  Receive Date: 20100805
  Receipt Date: 20100729
  Transmission Date: 20110219
  Serious: Yes (Hospitalization)
  Sender: FDA-Public Use
  Company Number: TPA2010A04333

PATIENT
  Age: 7 Year
  Sex: Female
  Weight: 18.1439 kg

DRUGS (2)
  1. PREVACID [Suspect]
     Indication: GASTROOESOPHAGEAL REFLUX DISEASE
     Dosage: 30 MG, 2 IN 1 D
     Dates: start: 20091226, end: 20100726
  2. ALBUTEROL INHALER (SALBUTAMOL) [Concomitant]

REACTIONS (3)
  - MUSCLE TWITCHING [None]
  - OVERDOSE [None]
  - REACTION TO DRUG EXCIPIENTS [None]
